FAERS Safety Report 9520437 (Version 3)
Quarter: 2014Q3

REPORT INFORMATION
  Report Type: Report from Study
  Country: FR (occurrence: FR)
  Receive Date: 20130912
  Receipt Date: 20140711
  Transmission Date: 20150326
  Serious: Yes (Death, Hospitalization, Other)
  Sender: FDA-Public Use
  Company Number: FR-TEVA-430577ISR

PATIENT

DRUGS (2)
  1. EFFENTORA [Suspect]
     Active Substance: FENTANYL CITRATE
     Indication: PRODUCT USED FOR UNKNOWN INDICATION
     Route: 002
     Dates: end: 201309
  2. TAXOTERE [Concomitant]
     Active Substance: DOCETAXEL
     Dates: start: 2013

REACTIONS (14)
  - Nausea [Unknown]
  - Atrial flutter [Unknown]
  - Vomiting [Unknown]
  - Constipation [Unknown]
  - Fatigue [Unknown]
  - Hypercalcaemia of malignancy [Fatal]
  - Hypotension [Unknown]
  - Anaemia [Unknown]
  - Pigmentation disorder [Unknown]
  - Myelodysplastic syndrome [Unknown]
  - Dyspnoea [Unknown]
  - Febrile neutropenia [Unknown]
  - Cardiac failure [Unknown]
  - Oedema peripheral [Unknown]

NARRATIVE: CASE EVENT DATE: 2013
